FAERS Safety Report 10337423 (Version 15)
Quarter: 2017Q1

REPORT INFORMATION
  Report Type: Spontaneous
  Country: CA (occurrence: CA)
  Receive Date: 20140724
  Receipt Date: 20170101
  Transmission Date: 20170428
  Serious: Yes (Hospitalization, Other)
  Sender: FDA-Public Use
  Company Number: CA-ROCHE-1437831

PATIENT
  Age: 48 Year
  Sex: Female
  Weight: 100 kg

DRUGS (16)
  1. XOLAIR [Suspect]
     Active Substance: OMALIZUMAB
     Route: 058
     Dates: start: 20111213
  2. XOLAIR [Suspect]
     Active Substance: OMALIZUMAB
     Route: 058
     Dates: start: 20140718
  3. SYMBICORT [Concomitant]
     Active Substance: BUDESONIDE\FORMOTEROL FUMARATE DIHYDRATE
     Indication: PRODUCT USED FOR UNKNOWN INDICATION
     Route: 065
  4. CORTISONE [Suspect]
     Active Substance: CORTISONE\HYDROCORTISONE
     Indication: PRODUCT USED FOR UNKNOWN INDICATION
     Dosage: STARTED 23 YEARS AGO
     Route: 065
  5. CETRIZINE [Concomitant]
     Active Substance: CETIRIZINE HYDROCHLORIDE
     Indication: PRODUCT USED FOR UNKNOWN INDICATION
     Route: 065
  6. XOLAIR [Suspect]
     Active Substance: OMALIZUMAB
     Route: 058
     Dates: start: 20141113
  7. XOLAIR [Suspect]
     Active Substance: OMALIZUMAB
     Route: 058
     Dates: start: 20160825
  8. XOLAIR [Suspect]
     Active Substance: OMALIZUMAB
     Route: 058
     Dates: start: 20161031
  9. XOLAIR [Suspect]
     Active Substance: OMALIZUMAB
     Route: 058
     Dates: start: 20161130
  10. FLONASE [Concomitant]
     Active Substance: FLUTICASONE PROPIONATE
     Indication: PRODUCT USED FOR UNKNOWN INDICATION
     Route: 065
  11. XOLAIR [Suspect]
     Active Substance: OMALIZUMAB
     Indication: ASTHMA
     Route: 058
     Dates: start: 20100401
  12. TUDORZA PRESSAIR [Concomitant]
     Active Substance: ACLIDINIUM BROMIDE
     Indication: PRODUCT USED FOR UNKNOWN INDICATION
     Route: 065
  13. INFLUENZA VACCINE [Concomitant]
     Active Substance: INFLUENZA VIRUS VACCINE
     Indication: PRODUCT USED FOR UNKNOWN INDICATION
     Route: 065
     Dates: start: 20161127
  14. ALVESCO [Concomitant]
     Active Substance: CICLESONIDE
     Indication: PRODUCT USED FOR UNKNOWN INDICATION
     Route: 065
  15. XOLAIR [Suspect]
     Active Substance: OMALIZUMAB
     Route: 058
     Dates: start: 20141014
  16. XOLAIR [Suspect]
     Active Substance: OMALIZUMAB
     Route: 058
     Dates: start: 20160527

REACTIONS (29)
  - Pruritus [Unknown]
  - Decreased appetite [Unknown]
  - Nausea [Unknown]
  - Bronchitis [Unknown]
  - Anxiety [Unknown]
  - Dizziness [Recovered/Resolved]
  - Pneumonitis [Unknown]
  - Malaise [Unknown]
  - Respiratory tract congestion [Unknown]
  - Headache [Unknown]
  - Musculoskeletal chest pain [Unknown]
  - Sinusitis [Unknown]
  - Diarrhoea [Unknown]
  - Back pain [Unknown]
  - Heart rate increased [Not Recovered/Not Resolved]
  - Respiratory rate increased [Not Recovered/Not Resolved]
  - Asthma [Unknown]
  - Hypersensitivity [Unknown]
  - Fatigue [Unknown]
  - Dysphonia [Unknown]
  - Weight increased [Unknown]
  - Diabetes mellitus [Unknown]
  - Constipation [Unknown]
  - Weight decreased [Unknown]
  - Pain [Unknown]
  - Dyspnoea [Unknown]
  - Adrenal disorder [Unknown]
  - Sleep disorder [Unknown]
  - Lung disorder [Unknown]

NARRATIVE: CASE EVENT DATE: 2014
